FAERS Safety Report 22295219 (Version 2)
Quarter: 2023Q2

REPORT INFORMATION
  Report Type: Spontaneous
  Country: US (occurrence: US)
  Receive Date: 20230508
  Receipt Date: 20230511
  Transmission Date: 20230722
  Serious: No
  Sender: FDA-Public Use
  Company Number: US-TAKEDA-2023TUS045303

PATIENT
  Sex: Female
  Weight: 73 kg

DRUGS (2)
  1. VYVANSE [Suspect]
     Active Substance: LISDEXAMFETAMINE DIMESYLATE
     Indication: Attention deficit hyperactivity disorder
     Dosage: 50 MILLIGRAM
     Route: 065
  2. VYVANSE [Suspect]
     Active Substance: LISDEXAMFETAMINE DIMESYLATE
     Dosage: 30 MILLIGRAM
     Route: 065

REACTIONS (4)
  - Disturbance in attention [Unknown]
  - Drug ineffective [Unknown]
  - Headache [Unknown]
  - Product physical issue [Unknown]

NARRATIVE: CASE EVENT DATE: 20220101
